FAERS Safety Report 7008021-X (Version None)
Quarter: 2010Q3

REPORT INFORMATION
  Report Type: 
  Country: None (occurrence: None)
  Receive Date: 20100922
  Receipt Date: 20100916
  Transmission Date: 20110219
  Serious: Yes (Hospitalization)
  Sender: FDA-Public Use
  Company Number: PHHO2010ES14117

PATIENT
  Sex: Male
  Weight: 75 kg

DRUGS (6)
  1. AFINITOR [Suspect]
     Indication: METASTATIC RENAL CELL CARCINOMA
     Dosage: 10 MG DAILY
     Route: 048
     Dates: start: 20100901, end: 20100915
  2. FORTECORTIN [Concomitant]
     Indication: BONE PAIN
  3. LYRICA [Concomitant]
     Indication: BONE PAIN
  4. MST [Concomitant]
     Indication: BONE PAIN
  5. IBUPROFEN [Concomitant]
     Indication: BONE PAIN
  6. CLEXANE [Concomitant]
     Indication: PROPHYLAXIS

REACTIONS (4)
  - ASTHENIA [None]
  - DYSPNOEA [None]
  - GENERAL PHYSICAL HEALTH DETERIORATION [None]
  - SOMNOLENCE [None]
